FAERS Safety Report 5557198-1 (Version None)
Quarter: 2007Q4

REPORT INFORMATION
  Report Type: 
  Country: None (occurrence: None)
  Receive Date: 20071214
  Receipt Date: 20071210
  Transmission Date: 20080405
  Serious: Yes (Hospitalization)
  Sender: FDA-Public Use
  Company Number: US-JNJFOC-20071202530

PATIENT
  Age: 51 Year
  Sex: Male

DRUGS (4)
  1. ACETAMINOPHEN [Suspect]
  2. ACETAMINOPHEN [Suspect]
     Indication: DRUG USE FOR UNKNOWN INDICATION
  3. ALCOHOL [Suspect]
     Indication: DRUG USE FOR UNKNOWN INDICATION
  4. ENALAPRIL [Concomitant]

REACTIONS (10)
  - ACUTE HEPATIC FAILURE [None]
  - AUTOIMMUNE HEPATITIS [None]
  - BLOOD CREATININE INCREASED [None]
  - CHOLECYSTITIS ACUTE [None]
  - DRUG TOXICITY [None]
  - HEPATITIS [None]
  - HEPATITIS ALCOHOLIC [None]
  - HEPATITIS INFECTIOUS [None]
  - HEPATO-LENTICULAR DEGENERATION [None]
  - HEPATOTOXICITY [None]
